FAERS Safety Report 7111775-5 (Version None)
Quarter: 2010Q4

REPORT INFORMATION
  Report Type: 
  Country: None (occurrence: None)
  Receive Date: 20101119
  Receipt Date: 20101012
  Transmission Date: 20110411
  Serious: Yes (Other)
  Sender: FDA-Public Use
  Company Number: GB-AMGEN-GBRSP2010000136

PATIENT

DRUGS (1)
  1. ENBREL [Suspect]

REACTIONS (3)
  - ATRIAL FIBRILLATION [None]
  - HYPERHIDROSIS [None]
  - PYREXIA [None]
